FAERS Safety Report 16005306 (Version 1)
Quarter: 2019Q1

REPORT INFORMATION
  Report Type: Spontaneous
  Country: US (occurrence: US)
  Receive Date: 20190226
  Receipt Date: 20190226
  Transmission Date: 20190418
  Serious: No
  Sender: FDA-Public Use
  Company Number: US-PFIZER INC-2014037700

PATIENT
  Age: 75 Year
  Sex: Female

DRUGS (4)
  1. TAXOL [Suspect]
     Active Substance: PACLITAXEL
     Dosage: UNK
  2. CODEINE [Suspect]
     Active Substance: CODEINE
     Dosage: UNK
  3. POLYCILLIN [Suspect]
     Active Substance: AMPICILLIN TRIHYDRATE
     Dosage: UNK
  4. DEMEROL [Suspect]
     Active Substance: MEPERIDINE HYDROCHLORIDE
     Dosage: UNK

REACTIONS (1)
  - Drug hypersensitivity [Unknown]
